FAERS Safety Report 9037731 (Version 1)
Quarter: 2013Q1

REPORT INFORMATION
  Report Type: Report from Study
  Country: US (occurrence: US)
  Receive Date: 20130129
  Receipt Date: 20130129
  Transmission Date: 20140127
  Serious: No
  Sender: FDA-Public Use
  Company Number: US-ABBOTT-12P-163-0895787-00

PATIENT
  Age: 55 None
  Sex: Female

DRUGS (11)
  1. HUMIRA 40 MG/0.8 ML PEN [Suspect]
     Indication: PSORIASIS
     Route: 058
     Dates: start: 20120102, end: 20120102
  2. HUMIRA 40 MG/0.8 ML PEN [Suspect]
     Indication: PSORIATIC ARTHROPATHY
     Route: 058
     Dates: start: 20120109
  3. QUINAPRIL HCL [Concomitant]
     Indication: BLOOD PRESSURE
     Dosage: THERE IS A WATER PILL IN IT
  4. CLONIDINE [Concomitant]
     Indication: BLOOD PRESSURE
     Dosage: PATCH. CHANGE EVERY SUNDAY
     Route: 062
  5. CYMBALTA [Concomitant]
     Indication: FIBROMYALGIA
  6. ALENDRONATE SODIUM [Concomitant]
     Indication: BONE DENSITY DECREASED
  7. B12 [Concomitant]
     Indication: PRODUCT USED FOR UNKNOWN INDICATION
  8. VITAMIN D [Concomitant]
     Indication: PRODUCT USED FOR UNKNOWN INDICATION
  9. VITAMIN D [Concomitant]
  10. KLOR-CON DF [Concomitant]
     Indication: PRODUCT USED FOR UNKNOWN INDICATION
     Dosage: ^25MG POTASSIUM^
  11. MAGNESIUM [Concomitant]
     Indication: PRODUCT USED FOR UNKNOWN INDICATION

REACTIONS (9)
  - Hot flush [Not Recovered/Not Resolved]
  - Nasopharyngitis [Not Recovered/Not Resolved]
  - Dysphonia [Unknown]
  - Throat irritation [Unknown]
  - Productive cough [Unknown]
  - Sinusitis [Unknown]
  - Respiratory tract congestion [Recovering/Resolving]
  - Pain [Not Recovered/Not Resolved]
  - Ill-defined disorder [Not Recovered/Not Resolved]
